FAERS Safety Report 17279916 (Version 1)
Quarter: 2020Q1

REPORT INFORMATION
  Report Type: Spontaneous
  Country: GB (occurrence: GB)
  Receive Date: 20200116
  Receipt Date: 20200116
  Transmission Date: 20200409
  Serious: Yes (Other)
  Sender: FDA-Public Use
  Company Number: GB-TEVA-2020-GB-1168108

PATIENT
  Age: 77 Year
  Sex: Male
  Weight: 83 kg

DRUGS (22)
  1. VENTOLIN [Concomitant]
     Active Substance: ALBUTEROL SULFATE
     Route: 055
     Dates: start: 20190712
  2. DOXYCYCLINE. [Concomitant]
     Active Substance: DOXYCYCLINE
     Dosage: 8 DAYS.
     Dates: start: 20191217
  3. SYMBICORT [Concomitant]
     Active Substance: BUDESONIDE\FORMOTEROL FUMARATE DIHYDRATE
     Dates: start: 20190712
  4. FLUTICASONE PROPIONATE. [Concomitant]
     Active Substance: FLUTICASONE PROPIONATE
     Dosage: IN EACH NOSTRIL WHEN NEEDED
     Dates: start: 20190712
  5. DIHYDROCODEINE [Concomitant]
     Active Substance: DIHYDROCODEINE
     Indication: PAIN
     Dosage: 1-2 FOUR TIMES A DAY
     Dates: start: 20190712
  6. ZOPICLONE [Concomitant]
     Active Substance: ZOPICLONE
     Dosage: AT NIGHT WHEN REQUIRED
     Dates: start: 20190712
  7. CLOPIDOGREL [Concomitant]
     Active Substance: CLOPIDOGREL BISULFATE
     Dates: start: 20190712
  8. LIQUIFILM TEARS [Concomitant]
     Active Substance: POLYVINYL ALCOHOL
     Dates: start: 20190712
  9. DERMOVATE [Concomitant]
     Active Substance: CLOBETASOL
     Dosage: APPLY SPARINGLY TO AFFECTED AREAS 1-2 TIMES/DAY...
     Dates: start: 20190712
  10. ATORVASTATIN [Concomitant]
     Active Substance: ATORVASTATIN
     Dosage: AT NIGHT
     Dates: start: 20190712
  11. FINASTERIDE. [Concomitant]
     Active Substance: FINASTERIDE
     Dates: start: 20190712
  12. GLYCERYL TRINITRATE [Concomitant]
     Active Substance: NITROGLYCERIN
     Dates: start: 20190712
  13. PREGABALIN. [Concomitant]
     Active Substance: PREGABALIN
     Dates: start: 20190712
  14. NICORANDIL [Concomitant]
     Active Substance: NICORANDIL
     Dates: start: 20190712
  15. RABEPRAZOLE [Concomitant]
     Active Substance: RABEPRAZOLE
     Dates: start: 20190712
  16. RANITIDINE. [Concomitant]
     Active Substance: RANITIDINE
     Dosage: AT NIGHT
     Dates: start: 20190712
  17. METOPROLOL TARTRATE. [Concomitant]
     Active Substance: METOPROLOL TARTRATE
     Dates: start: 20190712
  18. AMOXICILLIN. [Suspect]
     Active Substance: AMOXICILLIN
     Dosage: 1500 MG
     Route: 065
     Dates: start: 20191216
  19. LATANOPROST. [Concomitant]
     Active Substance: LATANOPROST
     Dosage: AT NIGHT
     Dates: start: 20190712
  20. TAMSULOSIN HYDROCHLORIDE. [Concomitant]
     Active Substance: TAMSULOSIN HYDROCHLORIDE
     Dates: start: 20190712
  21. DERMOL [Concomitant]
     Active Substance: BENZALKONIUM CHLORIDE\CHLORHEXIDINE HYDROCHLORIDE\ISOPROPYL MYRISTATE\PARAFFIN
     Dates: start: 20190712
  22. RAMIPRIL. [Concomitant]
     Active Substance: RAMIPRIL
     Dates: start: 20190712

REACTIONS (3)
  - Lip swelling [Unknown]
  - Swollen tongue [Recovered/Resolved]
  - Vomiting [Recovered/Resolved]
